FAERS Safety Report 21099953 (Version 3)
Quarter: 2022Q3

REPORT INFORMATION
  Report Type: Report from Study
  Country: US (occurrence: US)
  Receive Date: 20220719
  Receipt Date: 20220811
  Transmission Date: 20221027
  Serious: Yes (Other)
  Sender: FDA-Public Use
  Company Number: US-NOVARTISPH-NVSC2022US158356

PATIENT
  Sex: Female

DRUGS (1)
  1. COSENTYX [Suspect]
     Active Substance: SECUKINUMAB
     Indication: Psoriasis
     Dosage: UNK
     Route: 058

REACTIONS (6)
  - Atrial fibrillation [Unknown]
  - COVID-19 [Recovering/Resolving]
  - Bronchitis [Recovering/Resolving]
  - Psoriasis [Unknown]
  - Malaise [Unknown]
  - Insomnia [Unknown]
